FAERS Safety Report 4504303-1 (Version None)
Quarter: 2004Q4

REPORT INFORMATION
  Report Type: 
  Country: None (occurrence: None)
  Receive Date: 20041115
  Receipt Date: 20041103
  Transmission Date: 20050328
  Serious: Yes (Disabling)
  Sender: FDA-Public Use
  Company Number: 200212999

PATIENT
  Age: 51 Year
  Sex: Female
  Weight: 48.9885 kg

DRUGS (2)
  1. BOTOX COSMETIC [Suspect]
     Indication: SKIN WRINKLING
     Dosage: 155 UNITS  PRN IM
     Route: 030
     Dates: start: 20020618
  2. HYALAFORM [Concomitant]

REACTIONS (39)
  - ANXIETY [None]
  - BURNING SENSATION [None]
  - CERVICAL NEURITIS [None]
  - CHEILITIS [None]
  - DRUG INEFFECTIVE [None]
  - DYSPHAGIA [None]
  - FACIAL PALSY [None]
  - FAILURE OF IMPLANT [None]
  - FOLATE DEFICIENCY [None]
  - GASTROOESOPHAGEAL REFLUX DISEASE [None]
  - GINGIVAL PAIN [None]
  - GLOSSODYNIA [None]
  - HYPOAESTHESIA [None]
  - HYPOAESTHESIA ORAL [None]
  - IMPAIRED WORK ABILITY [None]
  - IMPLANT SITE INFECTION [None]
  - INFLUENZA [None]
  - INJURY [None]
  - INSOMNIA [None]
  - INTERVERTEBRAL DISC DISORDER [None]
  - LARYNGEAL OEDEMA [None]
  - MENTAL DISORDER [None]
  - MUCOSAL DISCOLOURATION [None]
  - MUSCLE STRAIN [None]
  - MUSCLE TIGHTNESS [None]
  - MUSCULOSKELETAL STIFFNESS [None]
  - NECK PAIN [None]
  - NEURALGIA [None]
  - NEUROPATHY PERIPHERAL [None]
  - ORAL CANDIDIASIS [None]
  - ORAL DISCOMFORT [None]
  - PHARYNGOLARYNGEAL PAIN [None]
  - POST PROCEDURAL COMPLICATION [None]
  - PYREXIA [None]
  - RADICULOPATHY [None]
  - SKIN TEST POSITIVE [None]
  - STOMATITIS [None]
  - THROAT IRRITATION [None]
  - VITAMIN B12 DEFICIENCY [None]
